FAERS Safety Report 5636178-1 (Version None)
Quarter: 2008Q1

REPORT INFORMATION
  Report Type: 
  Country: None (occurrence: None)
  Receive Date: 20080221
  Receipt Date: 20080221
  Transmission Date: 20080703
  Serious: No
  Sender: FDA-Public Use
  Company Number: None

PATIENT
  Sex: Female
  Weight: 53.5244 kg

DRUGS (1)
  1. ACTONEL [Suspect]
     Indication: OSTEOPENIA
     Dosage: 5MG 1 A DAY
     Dates: start: 20080124

REACTIONS (3)
  - DIZZINESS [None]
  - INSOMNIA [None]
  - THERAPEUTIC RESPONSE DECREASED [None]
